APPROVED DRUG PRODUCT: PYRUKYND
Active Ingredient: MITAPIVAT SULFATE
Strength: EQ 50MG BASE
Dosage Form/Route: TABLET;ORAL
Application: N216196 | Product #003
Applicant: AGIOS PHARMACEUTICALS INC
Approved: Feb 17, 2022 | RLD: Yes | RS: Yes | Type: RX

PATENTS:
Patent 11878049 | Expires: Jul 31, 2041
Patent 11793806 | Expires: Apr 12, 2033
Patent 9193701 | Expires: Oct 26, 2032
Patent 9682080 | Expires: May 3, 2032
Patent 9980961 | Expires: May 3, 2032
Patent 10632114 | Expires: May 3, 2032
Patent 11234976 | Expires: Oct 11, 2038
Patent RE49582 | Expires: Feb 24, 2031
Patent 11254652 | Expires: Nov 21, 2038

EXCLUSIVITY:
Code: NCE | Date: Feb 17, 2027
Code: ODE-392 | Date: Feb 17, 2029